FAERS Safety Report 17485142 (Version 1)
Quarter: 2020Q1

REPORT INFORMATION
  Report Type: Spontaneous
  Country: FR (occurrence: FR)
  Receive Date: 20200302
  Receipt Date: 20200302
  Transmission Date: 20200409
  Serious: Yes (Other)
  Sender: FDA-Public Use
  Company Number: FR-SHIRE-FR202003254

PATIENT

DRUGS (5)
  1. 422 (ANAGRELIDE) [Suspect]
     Active Substance: ANAGRELIDE
     Indication: CHRONIC MYELOID LEUKAEMIA
  2. 422 (ANAGRELIDE) [Suspect]
     Active Substance: ANAGRELIDE
     Indication: THROMBOCYTOSIS
  3. HYDROXYUREA. [Concomitant]
     Active Substance: HYDROXYUREA
     Indication: CHRONIC MYELOID LEUKAEMIA
  4. 422 (ANAGRELIDE) [Suspect]
     Active Substance: ANAGRELIDE
     Indication: ESSENTIAL THROMBOCYTHAEMIA
     Dosage: 2 MILLIGRAM, 1X/DAY:QD
     Route: 065
  5. IMATINIB MESYLATE. [Suspect]
     Active Substance: IMATINIB MESYLATE
     Indication: CHRONIC MYELOID LEUKAEMIA
     Dosage: 400 MILLIGRAM, 1X/DAY:QD
     Route: 065

REACTIONS (7)
  - Therapeutic product effect decreased [Unknown]
  - Thrombocytosis [Unknown]
  - Palpitations [Unknown]
  - Therapy non-responder [Unknown]
  - Gene mutation [Unknown]
  - Therapeutic response decreased [Unknown]
  - Headache [Unknown]
